FAERS Safety Report 9421106 (Version 1)
Quarter: 2013Q3

REPORT INFORMATION
  Report Type: Spontaneous
  Country: US (occurrence: None)
  Receive Date: 20130724
  Receipt Date: 20130724
  Transmission Date: 20140515
  Serious: Yes (Other)
  Sender: FDA-Public Use
  Company Number: TPA2013A06986

PATIENT
  Age: 80 Year
  Sex: Male

DRUGS (6)
  1. ADENURIC (FEBUXOSTAT) [Suspect]
     Indication: PRODUCT USED FOR UNKNOWN INDICATION
     Route: 048
     Dates: end: 20130103
  2. BISOPROLOL (BISOPROLOL) [Concomitant]
  3. MARCUMAR (PHENPROCOUMON) [Concomitant]
  4. TORASEMID (SORASEMIDE) [Concomitant]
  5. DIGIMEREK [Concomitant]
  6. SIMVASTATIN (SIMVASTATIN) [Concomitant]

REACTIONS (2)
  - Skin haemorrhage [None]
  - Conjunctivitis [None]
